FAERS Safety Report 12929371 (Version 4)
Quarter: 2016Q4

REPORT INFORMATION
  Report Type: Spontaneous
  Country: JP (occurrence: JP)
  Receive Date: 20161110
  Receipt Date: 20161230
  Transmission Date: 20170207
  Serious: Yes (Life-Threatening, Hospitalization, Other)
  Sender: FDA-Public Use
  Company Number: JP-009507513-1611JPN002666

PATIENT
  Age: 81 Year
  Sex: Male
  Weight: 53 kg

DRUGS (7)
  1. ESLAX INTRAVENOUS 25MG/2.5ML [Suspect]
     Active Substance: ROCURONIUM BROMIDE
     Dosage: 7 MICROGRAM PER KILOGRAM
     Route: 042
     Dates: start: 20160113, end: 20160113
  2. BRIDION [Concomitant]
     Active Substance: SUGAMMADEX
     Indication: NEUROMUSCULAR BLOCKING THERAPY
     Dosage: 200 MG, BID
     Route: 042
     Dates: start: 20160113, end: 20160113
  3. THIAMYLAL SODIUM [Concomitant]
     Active Substance: THIAMYLAL SODIUM
     Indication: INDUCTION OF ANAESTHESIA
     Dosage: 250 MG, UNK
     Route: 051
     Dates: start: 20160113, end: 20160113
  4. ESLAX INTRAVENOUS 25MG/2.5ML [Suspect]
     Active Substance: ROCURONIUM BROMIDE
     Indication: NEUROMUSCULAR BLOCKING THERAPY
     Dosage: 50 MG, BID
     Route: 042
     Dates: start: 20160113, end: 20160113
  5. SEVOFLURANE. [Concomitant]
     Active Substance: SEVOFLURANE
     Indication: MAINTENANCE OF ANAESTHESIA
     Dosage: 1.5 %, UNK
     Route: 055
     Dates: start: 20160113, end: 20160113
  6. ANAPEINE [Concomitant]
     Active Substance: ROPIVACAINE HYDROCHLORIDE
     Indication: EPIDURAL ANAESTHESIA
     Dosage: 2%
     Route: 051
     Dates: start: 20160113, end: 20160113
  7. LEVOTHYROXINE SODIUM. [Concomitant]
     Active Substance: LEVOTHYROXINE SODIUM
     Dosage: DAILY DOSAGE UNKNOWN
     Route: 048

REACTIONS (6)
  - Recurrence of neuromuscular blockade [Recovered/Resolved]
  - Hypoxia [Recovered/Resolved]
  - Bradycardia [Recovered/Resolved]
  - Depressed level of consciousness [Recovered/Resolved]
  - Overdose [Unknown]
  - Respiratory arrest [Recovered/Resolved]

NARRATIVE: CASE EVENT DATE: 20160113
